FAERS Safety Report 5118837-2 (Version None)
Quarter: 2006Q3

REPORT INFORMATION
  Report Type: 
  Country: None (occurrence: None)
  Receive Date: 20060927
  Receipt Date: 20060919
  Transmission Date: 20061208
  Serious: Yes (Hospitalization)
  Sender: FDA-Public Use
  Company Number: TPA2006A00524

PATIENT
  Age: 77 Year
  Sex: Male
  Weight: 82.9 kg

DRUGS (5)
  1. PIOGLITAZONE HCL [Suspect]
     Indication: GLUCOSE TOLERANCE IMPAIRED
     Dosage: QAM, PER ORAL
     Route: 048
     Dates: start: 20040820
  2. ZOCOR [Suspect]
  3. HYDROCHLOROTHIAZIDE [Concomitant]
  4. LISINOPRIL [Concomitant]
  5. LEVAQUIN [Concomitant]

REACTIONS (5)
  - BRONCHITIS [None]
  - HAEMOPTYSIS [None]
  - HEPATIC ENZYME INCREASED [None]
  - PNEUMONIA VIRAL [None]
  - TROPONIN INCREASED [None]
